FAERS Safety Report 21173330 (Version 4)
Quarter: 2023Q1

REPORT INFORMATION
  Report Type: Spontaneous
  Country: US (occurrence: US)
  Receive Date: 20220804
  Receipt Date: 20230119
  Transmission Date: 20230417
  Serious: Yes (Other)
  Sender: FDA-Public Use
  Company Number: US-BRISTOL-MYERS SQUIBB COMPANY-2022-071055

PATIENT
  Age: 82 Year
  Sex: Female

DRUGS (1)
  1. ORENCIA [Suspect]
     Active Substance: ABATACEPT
     Indication: Product used for unknown indication
     Route: 058

REACTIONS (7)
  - COVID-19 [Unknown]
  - Thrombosis [Unknown]
  - Gait disturbance [Unknown]
  - Fall [Unknown]
  - Rib fracture [Unknown]
  - Limb injury [Unknown]
  - Joint injury [Unknown]
